FAERS Safety Report 7606643-6 (Version None)
Quarter: 2011Q3

REPORT INFORMATION
  Report Type: 
  Country: None (occurrence: None)
  Receive Date: 20110713
  Receipt Date: 20110707
  Transmission Date: 20111222
  Serious: Yes (Hospitalization)
  Sender: FDA-Public Use
  Company Number: BR-ABBOTT-11P-020-0837371-00

PATIENT
  Sex: Male
  Weight: 96 kg

DRUGS (2)
  1. PREDNISONE [Suspect]
     Indication: CROHN'S DISEASE
     Route: 048
  2. HUMIRA [Suspect]
     Indication: CROHN'S DISEASE
     Route: 058
     Dates: start: 20100723, end: 20101201

REACTIONS (4)
  - BLOOD PRESSURE INCREASED [None]
  - WOUND [None]
  - GENITAL TRACT INFLAMMATION [None]
  - INFLAMMATION [None]
